FAERS Safety Report 24256649 (Version 3)
Quarter: 2025Q2

REPORT INFORMATION
  Report Type: Spontaneous
  Country: US (occurrence: US)
  Receive Date: 20240828
  Receipt Date: 20250421
  Transmission Date: 20250716
  Serious: No
  Sender: UCB
  Company Number: US-UCBSA-2024040098

PATIENT
  Sex: Male

DRUGS (1)
  1. NEUPRO [Suspect]
     Active Substance: ROTIGOTINE
     Indication: Restless legs syndrome
     Dosage: 8 MILLIGRAM, ONCE DAILY (QD)
     Route: 062
     Dates: start: 20220801

REACTIONS (8)
  - Insomnia [Recovered/Resolved]
  - Dysstasia [Recovered/Resolved]
  - Symptom recurrence [Recovered/Resolved]
  - Restless legs syndrome [Recovering/Resolving]
  - Scoliosis [Unknown]
  - Product adhesion issue [Unknown]
  - Product quality issue [Unknown]
  - Overdose [Unknown]

NARRATIVE: CASE EVENT DATE: 20240101
